FAERS Safety Report 7917540-0 (Version None)
Quarter: 2011Q4

REPORT INFORMATION
  Report Type: 
  Country: None (occurrence: None)
  Receive Date: 20111116
  Receipt Date: 20111107
  Transmission Date: 20120403
  Serious: Yes (Hospitalization, Other)
  Sender: FDA-Public Use
  Company Number: US-NOVOPROD-338900

PATIENT

DRUGS (9)
  1. SIMVASTATIN [Concomitant]
     Indication: BLOOD CHOLESTEROL
     Dosage: UNK
     Route: 048
  2. LASIX [Concomitant]
     Indication: PRODUCT USED FOR UNKNOWN INDICATION
     Dosage: UNK
     Route: 065
  3. POTASSIUM [Concomitant]
     Indication: PRODUCT USED FOR UNKNOWN INDICATION
     Dosage: UNK
     Route: 065
  4. LEVEMIR [Suspect]
     Indication: TYPE 2 DIABETES MELLITUS
     Dosage: 42U MORNING AND 60U EVENING
     Route: 058
     Dates: start: 20110401
  5. NOVOLOG [Suspect]
     Indication: TYPE 2 DIABETES MELLITUS
     Dosage: 19U MORNING, 19U LUNCH AND 17 UNITS PM, SLIDING SCALE
     Route: 058
     Dates: start: 20110401
  6. TEKTURNA [Concomitant]
     Indication: BLOOD PRESSURE
     Dosage: UNK
     Route: 065
  7. CAPTOPRIL [Concomitant]
     Indication: BLOOD PRESSURE
     Dosage: 12 MG EVERY 8 HOURS
     Route: 065
  8. NOVOLOG [Suspect]
     Dosage: 17 UNITS IN EVENING
     Route: 058
     Dates: start: 20100101
  9. ALLOPURINOL [Concomitant]
     Indication: PRODUCT USED FOR UNKNOWN INDICATION
     Dosage: UNK
     Route: 065

REACTIONS (2)
  - PLEURAL EFFUSION [None]
  - BLOOD GLUCOSE DECREASED [None]
